FAERS Safety Report 6661588-3 (Version None)
Quarter: 2010Q1

REPORT INFORMATION
  Report Type: 
  Country: None (occurrence: None)
  Receive Date: 20100331
  Receipt Date: 20090612
  Transmission Date: 20100710
  Serious: Yes (Other)
  Sender: FDA-Public Use
  Company Number: US-BRISTOL-MYERS SQUIBB COMPANY-14475370

PATIENT
  Age: 65 Year
  Sex: Male

DRUGS (7)
  1. ERBITUX [Suspect]
     Indication: COLON CANCER
     Dosage: STARTED ON 03DEC2008(DURATION 20MIN) RECENTLY ON 05JAN09(DURATION 40MIN)
     Route: 042
     Dates: start: 20090105, end: 20090105
  2. NARCOTIC ANALGESICS [Concomitant]
     Indication: PAIN
  3. BENADRYL [Concomitant]
     Indication: PREMEDICATION
     Route: 048
  4. NARCAN [Concomitant]
  5. EPINEPHRINE [Concomitant]
     Dosage: 1 DF = 1/1000 0.1CC
  6. SOLU-CORTEF [Concomitant]
  7. OXYGEN [Concomitant]
     Dosage: 1 DF = E 5L/MIN

REACTIONS (2)
  - COMA [None]
  - SLUGGISHNESS [None]
